FAERS Safety Report 19224086 (Version 1)
Quarter: 2021Q2

REPORT INFORMATION
  Report Type: Spontaneous
  Country: US (occurrence: US)
  Receive Date: 20210506
  Receipt Date: 20210506
  Transmission Date: 20210717
  Serious: Yes (Hospitalization)
  Sender: FDA-Public Use
  Company Number: None

PATIENT
  Sex: Male

DRUGS (16)
  1. LATUDA [Concomitant]
     Active Substance: LURASIDONE HYDROCHLORIDE
  2. GILENYA [Suspect]
     Active Substance: FINGOLIMOD HYDROCHLORIDE
     Indication: MULTIPLE SCLEROSIS
     Route: 048
     Dates: start: 20190408
  3. GABAPENTIN. [Concomitant]
     Active Substance: GABAPENTIN
  4. TRAZODONE [Concomitant]
     Active Substance: TRAZODONE HYDROCHLORIDE
  5. TRILEPTAL [Concomitant]
     Active Substance: OXCARBAZEPINE
  6. AIMOVIG [Concomitant]
     Active Substance: ERENUMAB-AOOE
  7. TIZANIDINE. [Concomitant]
     Active Substance: TIZANIDINE
  8. LORAZEPAM. [Concomitant]
     Active Substance: LORAZEPAM
  9. HYDROXYZ HCL [Concomitant]
     Active Substance: HYDROXYZINE HYDROCHLORIDE
  10. PAROXETINE. [Concomitant]
     Active Substance: PAROXETINE
  11. SUMTRIPTAN [Concomitant]
  12. BACLOFEN. [Concomitant]
     Active Substance: BACLOFEN
  13. DIVALPROEX [Concomitant]
     Active Substance: DIVALPROEX SODIUM
  14. LACTULOSE. [Concomitant]
     Active Substance: LACTULOSE
  15. OXCARBAZEPIN [Concomitant]
     Active Substance: OXCARBAZEPINE
  16. TOPIRAMATE. [Concomitant]
     Active Substance: TOPIRAMATE

REACTIONS (1)
  - Multiple sclerosis [None]
